FAERS Safety Report 7065246 (Version 4)
Quarter: 2012Q4

REPORT INFORMATION
  Report Type: 
  Country: AU (occurrence: AU)
  Receive Date: 20060222
  Receipt Date: 20120920
  Transmission Date: 20130627
  Serious: Yes (Hospitalization, Disabling, Other)
  Sender: FDA-Public Use
  Company Number: AU-PFIZER INC-2006020596

PATIENT
  Sex: Male
  Weight: 89 kg

DRUGS (7)
  1. LIPITOR [Suspect]
     Route: 048
     Dates: start: 1998, end: 20040817
  2. INSULIN [Concomitant]
     Indication: DIABETES MELLITUS
     Dosage: 70 units in the morning/60 units at night
     Route: 065
  3. AROPAX [Concomitant]
     Route: 065
  4. ZANTAC [Concomitant]
     Indication: ABDOMINAL DISCOMFORT
     Route: 065
  5. WARFARIN [Concomitant]
     Dosage: 20 mg, UNK
     Route: 065
  6. NORVASC [Concomitant]
     Dosage: 10 mg, UNK
     Route: 065
  7. MONODUR [Concomitant]
     Dosage: 60 mg, UNK
     Route: 065

REACTIONS (8)
  - Cerebrovascular accident [Recovering/Resolving]
  - Muscle atrophy [Recovered/Resolved with Sequelae]
  - Myalgia [Recovered/Resolved with Sequelae]
  - Feeling abnormal [Recovering/Resolving]
  - Pain [Recovered/Resolved]
  - Leg amputation [Unknown]
  - Erectile dysfunction [Unknown]
  - Gait disturbance [Recovered/Resolved]
